FAERS Safety Report 19502050 (Version 1)
Quarter: 2021Q3

REPORT INFORMATION
  Report Type: Spontaneous
  Country: US (occurrence: US)
  Receive Date: 20210707
  Receipt Date: 20210707
  Transmission Date: 20211014
  Serious: No
  Sender: FDA-Public Use
  Company Number: US-TARO-2021TAR00376

PATIENT

DRUGS (1)
  1. FLUOCINOLONE ACETONIDE TOPICAL SCALP OIL 0.01% [Suspect]
     Active Substance: FLUOCINOLONE ACETONIDE
     Indication: PSORIASIS
     Dosage: QD, APPLY THIN FILM TO SCALP
     Route: 061

REACTIONS (2)
  - Alopecia [Not Recovered/Not Resolved]
  - Erythema [Not Recovered/Not Resolved]

NARRATIVE: CASE EVENT DATE: 20210412
